FAERS Safety Report 7907693-2 (Version None)
Quarter: 2011Q4

REPORT INFORMATION
  Report Type: 
  Country: None (occurrence: None)
  Receive Date: 20111109
  Receipt Date: 20111109
  Transmission Date: 20120403
  Serious: Yes (Other)
  Sender: FDA-Public Use
  Company Number: None

PATIENT
  Sex: Female
  Weight: 56.6996 kg

DRUGS (2)
  1. MELOXICAM [Suspect]
     Indication: INFLAMMATION
     Dosage: 15 MG, 1/DAY, MOUTH
     Dates: start: 20111012
  2. MELOXICAM [Suspect]
     Indication: INFLAMMATION
     Dosage: 15 MG, 1/DAY, MOUTH
     Dates: start: 20111011

REACTIONS (1)
  - INSOMNIA [None]
